FAERS Safety Report 14400664 (Version 1)
Quarter: 2018Q1

REPORT INFORMATION
  Report Type: Spontaneous
  Country: US (occurrence: US)
  Receive Date: 20180117
  Receipt Date: 20180117
  Transmission Date: 20180509
  Serious: Yes (Death)
  Sender: FDA-Public Use
  Company Number: US-CHIESI USA INC-US-CHSI-18-00001

PATIENT
  Age: 53 Year
  Sex: Male

DRUGS (10)
  1. HEPARIN [Suspect]
     Active Substance: HEPARIN SODIUM
     Indication: ANTICOAGULANT THERAPY
     Route: 040
  2. HEPARIN [Suspect]
     Active Substance: HEPARIN SODIUM
     Route: 041
  3. KENGREAL [Suspect]
     Active Substance: CANGRELOR
     Dosage: 0.5 MG/KG/MIN
     Route: 042
  4. EPTIFIBATIDE. [Suspect]
     Active Substance: EPTIFIBATIDE
     Dosage: 2 MCG/KG/MIN
     Route: 041
  5. EPTIFIBATIDE. [Suspect]
     Active Substance: EPTIFIBATIDE
     Dosage: 1 MCG/KG/MIN
     Route: 040
  6. TICAGRELOR. [Suspect]
     Active Substance: TICAGRELOR
     Route: 048
  7. ASPIRIN. [Suspect]
     Active Substance: ASPIRIN
     Indication: ANTIPLATELET THERAPY
     Route: 065
  8. KENGREAL [Suspect]
     Active Substance: CANGRELOR
     Indication: STENT PATENCY MAINTENANCE
     Dosage: 2 MG/KG/MIN
     Route: 042
  9. TICAGRELOR. [Suspect]
     Active Substance: TICAGRELOR
     Indication: STENT PATENCY MAINTENANCE
     Route: 048
  10. EPTIFIBATIDE. [Suspect]
     Active Substance: EPTIFIBATIDE
     Indication: ANTIPLATELET THERAPY
     Route: 040

REACTIONS (2)
  - Off label use [Unknown]
  - Central nervous system lesion [Fatal]
